FAERS Safety Report 6085969-4 (Version None)
Quarter: 2009Q1

REPORT INFORMATION
  Report Type: 
  Country: None (occurrence: None)
  Receive Date: 20090218
  Receipt Date: 20090218
  Transmission Date: 20090719
  Serious: Yes (Other)
  Sender: FDA-Public Use
  Company Number: None

PATIENT
  Age: 31 Year
  Sex: Female
  Weight: 111.1313 kg

DRUGS (2)
  1. CYMBALTA [Suspect]
     Indication: ANXIETY
     Dosage: 60 MG ONCE DAILY PO
     Route: 048
     Dates: start: 20070601, end: 20090217
  2. CYMBALTA [Suspect]
     Indication: DEPRESSION
     Dosage: 60 MG ONCE DAILY PO
     Route: 048
     Dates: start: 20070601, end: 20090217

REACTIONS (11)
  - ALOPECIA [None]
  - ANXIETY [None]
  - BLADDER SPASM [None]
  - BLOOD URINE PRESENT [None]
  - DIZZINESS [None]
  - MOOD SWINGS [None]
  - NIGHTMARE [None]
  - TREMOR [None]
  - VISUAL IMPAIRMENT [None]
  - WEIGHT INCREASED [None]
  - WITHDRAWAL SYNDROME [None]
